FAERS Safety Report 24648293 (Version 2)
Quarter: 2024Q4

REPORT INFORMATION
  Report Type: Report from Study
  Country: DE (occurrence: DE)
  Receive Date: 20241121
  Receipt Date: 20241206
  Transmission Date: 20250114
  Serious: Yes (Death, Hospitalization)
  Sender: ALEXION PHARMACEUTICALS
  Company Number: DE-002147023-NVSC2024DE109070

PATIENT
  Weight: 108 kg

DRUGS (24)
  1. FASLODEX [Suspect]
     Active Substance: FULVESTRANT
     Indication: Hormone receptor positive HER2 negative breast cancer
     Dosage: 500 MG, Q2W (DAILY DOSE)
  2. FASLODEX [Suspect]
     Active Substance: FULVESTRANT
     Dosage: 500 MG, Q2W (DAILY DOSE)
  3. FASLODEX [Suspect]
     Active Substance: FULVESTRANT
     Dosage: 500 MG, Q2W (DAILY DOSE)
  4. FASLODEX [Suspect]
     Active Substance: FULVESTRANT
     Dosage: 500 MG, Q2W (DAILY DOSE)
  5. FASLODEX [Suspect]
     Active Substance: FULVESTRANT
     Dosage: 500 MG, Q2W (DAILY DOSE)
  6. FASLODEX [Suspect]
     Active Substance: FULVESTRANT
     Dosage: 500 MG, Q2W (DAILY DOSE)
  7. FASLODEX [Suspect]
     Active Substance: FULVESTRANT
     Dosage: 500 MG, Q2W (DAILY DOSE)
  8. FASLODEX [Suspect]
     Active Substance: FULVESTRANT
     Dosage: 500 MG, Q2W (DAILY DOSE)
  9. FASLODEX [Suspect]
     Active Substance: FULVESTRANT
     Dosage: 500 MG, Q2W (DAILY DOSE)
  10. FASLODEX [Suspect]
     Active Substance: FULVESTRANT
     Dosage: 500 MG, Q2W (DAILY DOSE)
  11. FASLODEX [Suspect]
     Active Substance: FULVESTRANT
     Dosage: 500 MG, Q2W (DAILY DOSE)
  12. FASLODEX [Suspect]
     Active Substance: FULVESTRANT
     Dosage: 500 MG, Q2W (DAILY DOSE)
  13. FASLODEX [Suspect]
     Active Substance: FULVESTRANT
     Dosage: 500 MG, Q2W (DAILY DOSE)
  14. FASLODEX [Suspect]
     Active Substance: FULVESTRANT
     Dosage: 500 MG, Q2W (DAILY DOSE)
  15. FASLODEX [Suspect]
     Active Substance: FULVESTRANT
     Dosage: 500 MG, Q2W (DAILY DOSE)
  16. FASLODEX [Suspect]
     Active Substance: FULVESTRANT
     Dosage: 500 MG, Q2W (DAILY DOSE)
  17. RIBOCICLIB [Suspect]
     Active Substance: RIBOCICLIB
     Indication: Hormone receptor positive HER2 negative breast cancer
     Dosage: 600 MG, QD (SCHEMA 21 DAYS INTAKE, 7 DAYS PAUSE)
  18. RIBOCICLIB [Suspect]
     Active Substance: RIBOCICLIB
     Dosage: 600 MG, QD (SCHEMA 21 DAYS INTAKE, 7 DAYS PAUSE)
  19. RIBOCICLIB [Suspect]
     Active Substance: RIBOCICLIB
     Dosage: 600 MG, QD (SCHEMA 21 DAYS INTAKE, 7 DAYS PAUSE)
  20. RIBOCICLIB [Suspect]
     Active Substance: RIBOCICLIB
     Dosage: 600 MG, QD (SCHEMA 21 DAYS INTAKE, 7 DAYS PAUSE)
  21. RIBOCICLIB [Suspect]
     Active Substance: RIBOCICLIB
     Dosage: 600 MG, QD (SCHEMA 21 DAYS INTAKE, 7 DAYS PAUSE)
  22. RIBOCICLIB [Suspect]
     Active Substance: RIBOCICLIB
     Dosage: 600 MG, QD (SCHEMA 21 DAYS INTAKE, 7 DAYS PAUSE)
  23. RIBOCICLIB [Suspect]
     Active Substance: RIBOCICLIB
     Dosage: 600 MG, QD (SCHEMA 21 DAYS INTAKE, 7 DAYS PAUSE)
  24. RIBOCICLIB [Suspect]
     Active Substance: RIBOCICLIB
     Dosage: 600 MG, QD (SCHEMA 21 DAYS INTAKE, 7 DAYS PAUSE)

REACTIONS (2)
  - Mucosal inflammation [Fatal]
  - General physical condition abnormal [Fatal]
